FAERS Safety Report 24087464 (Version 4)
Quarter: 2025Q2

REPORT INFORMATION
  Report Type: Report from Study
  Country: CN (occurrence: CN)
  Receive Date: 20240714
  Receipt Date: 20250513
  Transmission Date: 20250717
  Serious: Yes (Hospitalization, Other)
  Sender: ROCHE
  Company Number: CN-ROCHE-3568038

PATIENT
  Age: 49 Year
  Sex: Male
  Weight: 52 kg

DRUGS (7)
  1. POLIVY [Suspect]
     Active Substance: POLATUZUMAB VEDOTIN-PIIQ
     Indication: Diffuse large B-cell lymphoma
     Dosage: DATE OF THE MOST RECENT DOSE OF POLATUZUMAB (120MG ONCE PER DAY, INTRAVENOUS) WAS ON 16/APR/2024.
     Route: 042
     Dates: start: 20240224
  2. POLIVY [Suspect]
     Active Substance: POLATUZUMAB VEDOTIN-PIIQ
     Route: 042
  3. MABTHERA [Suspect]
     Active Substance: RITUXIMAB
     Indication: Diffuse large B-cell lymphoma
     Dosage: 16-APR-2024
     Route: 042
     Dates: end: 20240416
  4. MABTHERA [Suspect]
     Active Substance: RITUXIMAB
     Dosage: 16-APR-2024
     Route: 042
     Dates: start: 20240223, end: 20240223
  5. MABTHERA [Suspect]
     Active Substance: RITUXIMAB
     Dosage: 16-APR-2024
     Route: 042
     Dates: start: 20240320, end: 20240320
  6. CYCLOPHOSPHAMIDE [Suspect]
     Active Substance: CYCLOPHOSPHAMIDE
     Indication: Diffuse large B-cell lymphoma
     Route: 065
  7. DOXORUBICIN [Suspect]
     Active Substance: DOXORUBICIN
     Indication: Diffuse large B-cell lymphoma
     Route: 065

REACTIONS (12)
  - Aspartate aminotransferase increased [Recovered/Resolved]
  - Hyperuricaemia [Recovered/Resolved]
  - Hypofibrinogenaemia [Recovered/Resolved]
  - Hypoalbuminaemia [Recovered/Resolved]
  - Pulmonary embolism [Recovered/Resolved]
  - Hypernatraemia [Recovered/Resolved]
  - Hypokalaemia [Recovered/Resolved]
  - Hypocalcaemia [Recovered/Resolved]
  - Platelet count decreased [Recovered/Resolved]
  - White blood cell count decreased [Recovered/Resolved]
  - Neutrophil count decreased [Recovered/Resolved]
  - Altered state of consciousness [Not Recovered/Not Resolved]

NARRATIVE: CASE EVENT DATE: 20240225
